FAERS Safety Report 5044893-6 (Version None)
Quarter: 2006Q3

REPORT INFORMATION
  Report Type: 
  Country: None (occurrence: None)
  Receive Date: 20060707
  Receipt Date: 20060626
  Transmission Date: 20061208
  Serious: Yes (Other)
  Sender: FDA-Public Use
  Company Number: GB-JNJFOC-20060606193

PATIENT

DRUGS (3)
  1. RISPERDAL QUICKLETS [Suspect]
     Indication: DRUG USE FOR UNKNOWN INDICATION
     Route: 048
  2. RISPERDAL CONSTA [Suspect]
     Indication: DRUG USE FOR UNKNOWN INDICATION
     Route: 030
  3. HALOPERIDOL [Suspect]
     Indication: DRUG USE FOR UNKNOWN INDICATION
     Route: 065

REACTIONS (11)
  - DRY SKIN [None]
  - IRRITABILITY [None]
  - LIP DRY [None]
  - MOOD ALTERED [None]
  - MUSCULOSKELETAL STIFFNESS [None]
  - NAUSEA [None]
  - PARAESTHESIA [None]
  - RASH [None]
  - SOMNOLENCE [None]
  - SWELLING FACE [None]
  - WEIGHT INCREASED [None]
